FAERS Safety Report 8767440 (Version 1)
Quarter: 2012Q4

REPORT INFORMATION
  Report Type: 
  Country: US (occurrence: US)
  Receive Date: 20120904
  Receipt Date: 20120904
  Transmission Date: 20130627
  Serious: No
  Sender: FDA-Public Use
  Company Number: US-TEVA-357164USA

PATIENT
  Age: 33 Year
  Sex: Female
  Weight: 57.2 kg

DRUGS (2)
  1. PLAN B ONE-STEP [Suspect]
     Indication: POST COITAL CONTRACEPTION
     Dosage: 1.5 Milligram Daily;
     Route: 048
     Dates: start: 20120825, end: 20120825
  2. IBUPROFEN [Concomitant]
     Indication: NEURITIS

REACTIONS (6)
  - Decreased appetite [Not Recovered/Not Resolved]
  - Facial wasting [Not Recovered/Not Resolved]
  - Feeling abnormal [Not Recovered/Not Resolved]
  - Abdominal pain upper [Not Recovered/Not Resolved]
  - Menstruation irregular [Not Recovered/Not Resolved]
  - Dizziness [Not Recovered/Not Resolved]
